FAERS Safety Report 24738481 (Version 1)
Quarter: 2024Q4

REPORT INFORMATION
  Report Type: Report from Study
  Country: US (occurrence: US)
  Receive Date: 20241216
  Receipt Date: 20241216
  Transmission Date: 20250114
  Serious: Yes (Hospitalization)
  Sender: GLAXOSMITHKLINE
  Company Number: US-GSK-US2022GSK073270

PATIENT

DRUGS (5)
  1. BELIMUMAB [Suspect]
     Active Substance: BELIMUMAB
     Indication: Systemic lupus erythematosus
     Dosage: UNK
     Route: 042
  2. CYMBALTA [Concomitant]
     Active Substance: DULOXETINE HYDROCHLORIDE
     Indication: Depression
     Dosage: 90 MG, QD
     Route: 048
     Dates: start: 2018
  3. DEPAKOTE [Concomitant]
     Active Substance: DIVALPROEX SODIUM
     Indication: Post-traumatic stress disorder
     Dosage: 750 MG, QD
     Route: 048
     Dates: start: 2018
  4. DICLOFENAC [Concomitant]
     Active Substance: DICLOFENAC
     Indication: Systemic lupus erythematosus
     Dosage: 75 MG, BID
     Route: 048
     Dates: start: 20190106
  5. HYDROXYCHLOROQUINE [Concomitant]
     Active Substance: HYDROXYCHLOROQUINE
     Indication: Systemic lupus erythematosus
     Dosage: 200 MG, BID
     Route: 048
     Dates: start: 20190319

REACTIONS (1)
  - Adjustment disorder with mixed anxiety and depressed mood [Recovering/Resolving]

NARRATIVE: CASE EVENT DATE: 20190614
